FAERS Safety Report 4971022-7 (Version None)
Quarter: 2006Q2

REPORT INFORMATION
  Report Type: 
  Country: None (occurrence: None)
  Receive Date: 20060411
  Receipt Date: 20060411
  Transmission Date: 20061013
  Serious: Yes (Life-Threatening, Hospitalization)
  Sender: FDA-Public Use
  Company Number: None

PATIENT
  Age: 52 Year
  Sex: Male
  Weight: 76.2 kg

DRUGS (1)
  1. ZOSYN [Suspect]
     Indication: SEPTIC SHOCK
     Dosage: 2.25 GM Q 8H IV BOLUS
     Route: 040

REACTIONS (3)
  - LICHENOID KERATOSIS [None]
  - STEVENS-JOHNSON SYNDROME [None]
  - TOXIC EPIDERMAL NECROLYSIS [None]
